FAERS Safety Report 4668601-3 (Version None)
Quarter: 2005Q2

REPORT INFORMATION
  Report Type: 
  Country: None (occurrence: None)
  Receive Date: 20050523
  Receipt Date: 20041103
  Transmission Date: 20051028
  Serious: Yes (Other)
  Sender: FDA-Public Use
  Company Number: PHNU2004DE03724

PATIENT
  Sex: Female

DRUGS (1)
  1. ZOMETA [Suspect]
     Dosage: UNK, QMO
     Dates: start: 20040201, end: 20040901

REACTIONS (6)
  - IMPAIRED HEALING [None]
  - INFLAMMATION [None]
  - OSTEONECROSIS [None]
  - PAIN IN JAW [None]
  - TOOTH DISORDER [None]
  - TOOTH EXTRACTION [None]
